FAERS Safety Report 5128995-1 (Version None)
Quarter: 2006Q4

REPORT INFORMATION
  Report Type: 
  Country: None (occurrence: None)
  Receive Date: 20061016
  Receipt Date: 20061016
  Transmission Date: 20070319
  Serious: No
  Sender: FDA-Public Use
  Company Number: None

PATIENT
  Age: 45 Year
  Sex: Female
  Weight: 72.5755 kg

DRUGS (2)
  1. IMIPRAMINE [Suspect]
     Indication: DEPRESSION
     Dosage: 75 MG 1X A DAY HS PO
     Route: 048
     Dates: start: 19920518, end: 20041010
  2. IMIPRAMINE [Suspect]
     Indication: PANIC DISORDER
     Dosage: 75 MG 1X A DAY HS PO
     Route: 048
     Dates: start: 19920518, end: 20041010

REACTIONS (10)
  - ANXIETY [None]
  - DYSPNOEA [None]
  - ECONOMIC PROBLEM [None]
  - HEART RATE INCREASED [None]
  - MEMORY IMPAIRMENT [None]
  - PRURITUS [None]
  - RESPIRATORY RATE DECREASED [None]
  - SOMNOLENCE [None]
  - STRESS [None]
  - SUNBURN [None]
